FAERS Safety Report 4596872-0 (Version None)
Quarter: 2005Q1

REPORT INFORMATION
  Report Type: 
  Country: None (occurrence: None)
  Receive Date: 20050228
  Receipt Date: 20050218
  Transmission Date: 20050727
  Serious: Yes (Hospitalization)
  Sender: FDA-Public Use
  Company Number: 2005033893

PATIENT
  Age: 71 Year
  Sex: Female

DRUGS (1)
  1. ZITHROMAX [Suspect]
     Indication: NASOPHARYNGITIS
     Dosage: 1 D, ORAL
     Route: 048
     Dates: start: 20040101

REACTIONS (1)
  - CELLULITIS [None]
